FAERS Safety Report 23940758 (Version 1)
Quarter: 2024Q2

REPORT INFORMATION
  Report Type: Spontaneous
  Country: US (occurrence: US)
  Receive Date: 20240605
  Receipt Date: 20240605
  Transmission Date: 20240716
  Serious: Yes (Other)
  Sender: FDA-Public Use
  Company Number: US-MLMSERVICE-20240514-PI062686-00117-1

PATIENT
  Age: 22 Year
  Sex: Female

DRUGS (2)
  1. DEXAMETHASONE [Suspect]
     Active Substance: DEXAMETHASONE
     Indication: Metastases to central nervous system
     Dosage: UNKNOWN
     Route: 065
     Dates: start: 202302, end: 202304
  2. DEXAMETHASONE [Suspect]
     Active Substance: DEXAMETHASONE
     Indication: Steroid therapy

REACTIONS (2)
  - Positron emission tomogram abnormal [Recovered/Resolved]
  - Laboratory test interference [Recovered/Resolved]

NARRATIVE: CASE EVENT DATE: 20230401
